FAERS Safety Report 15649411 (Version 3)
Quarter: 2020Q1

REPORT INFORMATION
  Report Type: Report from Study
  Country: US (occurrence: US)
  Receive Date: 20181122
  Receipt Date: 20200312
  Transmission Date: 20200409
  Serious: Yes (Death, Other)
  Sender: FDA-Public Use
  Company Number: US-ACADIA PHARMACEUTICALS INC.-ACA-2018-010401

PATIENT
  Age: 78 Year
  Sex: Male

DRUGS (4)
  1. NUPLAZID [Suspect]
     Active Substance: PIMAVANSERIN TARTRATE
     Indication: PARKINSON^S DISEASE
     Dosage: 10 MILLIGRAM, QD
     Route: 048
     Dates: start: 201901
  2. NUPLAZID [Suspect]
     Active Substance: PIMAVANSERIN TARTRATE
     Indication: HALLUCINATION
     Dosage: 34 MG, QD
     Route: 048
     Dates: start: 20180920, end: 20180921
  3. NUPLAZID [Suspect]
     Active Substance: PIMAVANSERIN TARTRATE
     Indication: DELUSION
     Dosage: 17 MG, QD
     Route: 048
  4. NUPLAZID [Suspect]
     Active Substance: PIMAVANSERIN TARTRATE
     Indication: PARKINSON^S DISEASE PSYCHOSIS
     Dosage: HALF OF A 17 MG TABLET
     Route: 048

REACTIONS (10)
  - Delusion [Recovered/Resolved]
  - Underdose [Unknown]
  - Eye disorder [Unknown]
  - Confusional state [Recovering/Resolving]
  - Wrong technique in product usage process [Unknown]
  - Lethargy [Recovering/Resolving]
  - Mobility decreased [Unknown]
  - Death [Fatal]
  - Indifference [Unknown]
  - Underdose [Unknown]

NARRATIVE: CASE EVENT DATE: 20180920
